FAERS Safety Report 9173940 (Version 1)
Quarter: 2013Q1

REPORT INFORMATION
  Report Type: Spontaneous
  Country: US (occurrence: US)
  Receive Date: 20130320
  Receipt Date: 20130320
  Transmission Date: 20140127
  Serious: Yes (Other)
  Sender: FDA-Public Use
  Company Number: US-TEVA-381479USA

PATIENT
  Sex: 0

DRUGS (1)
  1. ETOPOSIDE [Suspect]

REACTIONS (1)
  - Hypersensitivity [Unknown]
